FAERS Safety Report 9312464 (Version 2)
Quarter: 2013Q3

REPORT INFORMATION
  Report Type: Spontaneous
  Country: US (occurrence: None)
  Receive Date: 20130507
  Receipt Date: 20130705
  Transmission Date: 20140515
  Serious: Yes (Death, Hospitalization, Other)
  Sender: FDA-Public Use
  Company Number: 2012PROUSA01906

PATIENT
  Age: 69 Year
  Sex: Male
  Weight: 75.7 kg

DRUGS (18)
  1. PROVENGE [Suspect]
     Indication: PROSTATE CANCER
     Route: 042
     Dates: start: 20120730, end: 20120730
  2. PROVENGE [Suspect]
     Indication: PROSTATE CANCER METASTATIC
     Route: 042
     Dates: start: 20120730, end: 20120730
  3. RESTORIL [Concomitant]
  4. MORPHINE HYDROCHLORIDE [Concomitant]
  5. REGLAN [Concomitant]
  6. ATIVAN [Concomitant]
  7. PROMETHAZINE [Concomitant]
  8. AMBIEN [Concomitant]
  9. COMPAZINE [Concomitant]
  10. ZOFRAN [Concomitant]
  11. SYNTHROID [Concomitant]
  12. XGEVA [Concomitant]
  13. TRELSTAR [Concomitant]
  14. GLIMEPIRIDE [Concomitant]
  15. LISINOPRIL [Concomitant]
  16. MONOPRIL HCT [Concomitant]
  17. ACTOS [Concomitant]
  18. FENTANYL [Concomitant]

REACTIONS (9)
  - Vision blurred [None]
  - Metastases to central nervous system [None]
  - Disease progression [None]
  - Chest pain [None]
  - Asthenia [None]
  - Hypovolaemia [None]
  - Dizziness [None]
  - Syncope [None]
  - Malignant neoplasm progression [None]
